FAERS Safety Report 9028862 (Version 5)
Quarter: 2013Q1

REPORT INFORMATION
  Report Type: Report from Study
  Country: FR (occurrence: FR)
  Receive Date: 20130117
  Receipt Date: 20130313
  Transmission Date: 20140127
  Serious: Yes (Hospitalization)
  Sender: FDA-Public Use
  Company Number: FR-MPIJNJ-2012-08914

PATIENT
  Sex: 0

DRUGS (23)
  1. VELCADE [Suspect]
     Indication: MANTLE CELL LYMPHOMA
     Dosage: 2.52 MG, CYCLIC
     Route: 058
     Dates: start: 20121008, end: 20121203
  2. VELCADE [Suspect]
     Dosage: UNK
     Route: 058
     Dates: start: 20130110
  3. MABTHERA [Suspect]
     Indication: MANTLE CELL LYMPHOMA
     Dosage: 727.5 MG, UNK
     Route: 042
     Dates: start: 20121008, end: 20121203
  4. MABTHERA [Suspect]
     Dosage: UNK
     Dates: start: 20130110
  5. LEVACT [Suspect]
     Indication: MANTLE CELL LYMPHOMA
     Dosage: 174.6 MG, UNK
     Route: 042
     Dates: start: 20121008, end: 20121204
  6. LEVACT [Suspect]
     Dosage: 174.6 UNK, UNK
     Route: 042
     Dates: start: 20130110
  7. DEXAMETHASONE [Suspect]
     Indication: MANTLE CELL LYMPHOMA
     Dosage: 40 MG, UNK
     Route: 042
     Dates: start: 20121009, end: 20121204
  8. DEXAMETHASONE [Suspect]
     Dosage: UNK
     Dates: start: 20130110
  9. ATENOLOL [Concomitant]
     Dosage: UNK
  10. AMLOR [Concomitant]
     Dosage: 5 MG, UNK
     Route: 048
  11. LASILIX                            /00032601/ [Concomitant]
     Dosage: 40 MG, UNK
     Route: 048
  12. KARDEGIC                           /00002703/ [Concomitant]
     Dosage: 5 MG, UNK
     Route: 048
  13. CORDARONE [Concomitant]
     Dosage: 200 MG, UNK
     Route: 048
  14. CRESTOR                            /01588601/ [Concomitant]
     Dosage: 5 MG, UNK
     Route: 048
  15. HYPERIUM                           /00939801/ [Concomitant]
     Dosage: 2 MG, UNK
     Route: 048
  16. AVALON [Concomitant]
     Dosage: UNK
  17. INEXIUM /01479302/ [Concomitant]
     Dosage: 20 MG, UNK
     Route: 048
  18. XATRAL                             /00975301/ [Concomitant]
     Dosage: 10 MG, UNK
     Route: 048
  19. KALEORID [Concomitant]
     Dosage: 1000 MG, UNK
     Route: 048
  20. LOVENOX [Concomitant]
     Dosage: 0.8 ML, UNK
     Route: 058
  21. RILMENIDINE [Concomitant]
     Dosage: 2 MG, UNK
  22. FUROSEMIDE [Concomitant]
     Dosage: 40 MG, UNK
  23. ACETYLSALICYLIC ACID [Concomitant]
     Dosage: 75 MG, UNK

REACTIONS (7)
  - Cardiac failure [Recovered/Resolved]
  - Ventricular tachycardia [Recovered/Resolved]
  - Dyspnoea [Recovered/Resolved]
  - Infusion related reaction [Recovered/Resolved]
  - Oedema peripheral [Recovered/Resolved]
  - Weight increased [Recovered/Resolved]
  - Cardiac failure congestive [Recovered/Resolved]
